FAERS Safety Report 8840652 (Version 1)
Quarter: 2012Q4

REPORT INFORMATION
  Report Type: Report from Study
  Country: DE (occurrence: DE)
  Receive Date: 20121015
  Receipt Date: 20121015
  Transmission Date: 20130627
  Serious: Yes (Hospitalization)
  Sender: FDA-Public Use
  Company Number: DE-PFIZER INC-2012248443

PATIENT
  Age: 62 Year
  Sex: Female
  Weight: 60 kg

DRUGS (4)
  1. IRINOTECAN HCL [Suspect]
     Indication: COLORECTAL CANCER METASTATIC
     Dosage: 275 mg, cyclic, 1 day of cycle
     Route: 042
     Dates: start: 20120223, end: 20120426
  2. CAPECITABINE [Suspect]
     Indication: COLORECTAL CANCER METASTATIC
     Dosage: 2500 mg, cyclic, first 14 days of cycle
     Route: 048
     Dates: start: 20120223
  3. BEVACIZUMAB [Suspect]
     Indication: COLORECTAL CANCER METASTATIC
     Dosage: 488 mg, cyclic, day 1 of cycle.
     Route: 042
     Dates: start: 20120223
  4. L-THYROXIN [Concomitant]
     Indication: HYPOTHYROIDISM
     Dosage: 50 ug, UNK
     Dates: start: 1996

REACTIONS (1)
  - General physical health deterioration [Recovering/Resolving]
